FAERS Safety Report 9344395 (Version 1)
Quarter: 2013Q2

REPORT INFORMATION
  Report Type: Spontaneous
  Country: US (occurrence: US)
  Receive Date: 20130612
  Receipt Date: 20130612
  Transmission Date: 20140414
  Serious: No
  Sender: FDA-Public Use
  Company Number: US-ASTRAZENECA-2013SE38748

PATIENT
  Age: 66 Year
  Sex: Male
  Weight: 112.5 kg

DRUGS (10)
  1. NEXIUM [Suspect]
     Indication: GASTROOESOPHAGEAL REFLUX DISEASE
     Route: 048
     Dates: start: 20130423
  2. LISINOPRIL [Suspect]
     Indication: HYPERTENSION
     Route: 048
     Dates: start: 2001
  3. METROPROLOL [Suspect]
     Indication: CARDIAC FLUTTER
     Route: 048
     Dates: start: 2007
  4. METROPROLOL [Suspect]
     Indication: CARDIAC FLUTTER
     Dosage: HALF OF METOPROLOL SUCCINATE, 12.5 MG, DAILY
     Route: 048
  5. METROPROLOL [Suspect]
     Indication: CARDIAC FLUTTER
     Route: 048
  6. SYNTHROID [Concomitant]
     Indication: THYROID DISORDER
     Dosage: 25MCG DAILY
     Route: 048
     Dates: start: 20130319, end: 20130416
  7. ASPIRIN [Concomitant]
     Indication: HYPERTENSION
     Route: 048
  8. ZETIA [Concomitant]
     Indication: BLOOD CHOLESTEROL ABNORMAL
     Route: 048
  9. JANUVIA [Concomitant]
     Indication: DIABETES MELLITUS
     Dosage: 50/100MG BID
     Route: 048
     Dates: start: 20130416
  10. IRBESARTAN [Concomitant]
     Indication: HYPERTENSION
     Route: 048
     Dates: start: 2005

REACTIONS (16)
  - Hypertension [Unknown]
  - Haemorrhage [Unknown]
  - Acne [Unknown]
  - Diverticulum [Unknown]
  - Umbilical hernia [Unknown]
  - Gallbladder disorder [Unknown]
  - Gastric ulcer [Unknown]
  - Hypothyroidism [Unknown]
  - Type 2 diabetes mellitus [Unknown]
  - Blood cholesterol increased [Unknown]
  - Hernia [Unknown]
  - Gastric disorder [Unknown]
  - Eructation [Unknown]
  - Fatigue [Unknown]
  - Off label use [Unknown]
  - Intentional drug misuse [Unknown]
